FAERS Safety Report 8973549 (Version 1)
Quarter: 2012Q4

REPORT INFORMATION
  Report Type: 
  Country: US (occurrence: US)
  Receive Date: 20121218
  Receipt Date: 20121218
  Transmission Date: 20130627
  Serious: Yes (Other)
  Sender: FDA-Public Use
  Company Number: US-BRISTOL-MYERS SQUIBB COMPANY-16392284

PATIENT
  Age: 60 Year
  Sex: Female

DRUGS (7)
  1. ABILIFY [Suspect]
     Indication: MOOD SWINGS
     Dosage: 13Dec2011
20Dec2011-09Jan2012
     Route: 048
     Dates: start: 20111213, end: 20120109
  2. ABILIFY [Suspect]
     Indication: DEPRESSION
     Dosage: 13Dec2011
20Dec2011-09Jan2012
     Route: 048
     Dates: start: 20111213, end: 20120109
  3. GEODON [Suspect]
  4. CYMBALTA [Concomitant]
     Dosage: 30mg daily oral
     Route: 048
  5. CONCERTA [Concomitant]
     Route: 048
  6. LAMICTAL [Concomitant]
     Route: 048
  7. TRAZODONE HCL [Concomitant]
     Route: 048

REACTIONS (1)
  - Dyskinesia [Recovered/Resolved]
